FAERS Safety Report 11716802 (Version 3)
Quarter: 2015Q4

REPORT INFORMATION
  Report Type: Spontaneous
  Country: US (occurrence: US)
  Receive Date: 20151104
  Receipt Date: 20151120
  Transmission Date: 20160304
  Serious: No
  Sender: FDA-Public Use
  Company Number: US-ELI_LILLY_AND_COMPANY-US201107003681

PATIENT
  Age: 45 Year
  Sex: Female

DRUGS (3)
  1. FORTEO [Suspect]
     Active Substance: TERIPARATIDE
     Indication: OSTEOPOROSIS
     Dosage: 20 UG, QD
     Route: 065
     Dates: start: 201107, end: 201110
  2. FORTEO [Suspect]
     Active Substance: TERIPARATIDE
     Dosage: 20 UG, QD
     Dates: start: 201111
  3. FORTEO [Suspect]
     Active Substance: TERIPARATIDE
     Dosage: 20 UG, QD
     Dates: end: 201207

REACTIONS (10)
  - Fear [Unknown]
  - Anxiety [Unknown]
  - Drug dose omission [Recovered/Resolved]
  - Incorrect product storage [Recovered/Resolved]
  - Dental operation [Not Recovered/Not Resolved]
  - Muscle spasms [Unknown]
  - Body fat disorder [Unknown]
  - Pain in jaw [Recovered/Resolved]
  - Weight abnormal [Unknown]
  - Injection site pain [Recovering/Resolving]

NARRATIVE: CASE EVENT DATE: 201110
